FAERS Safety Report 4356459-1 (Version None)
Quarter: 2004Q2

REPORT INFORMATION
  Report Type: 
  Country: None (occurrence: None)
  Receive Date: 20040507
  Receipt Date: 20040423
  Transmission Date: 20050107
  Serious: No
  Sender: FDA-Public Use
  Company Number: A01200401978

PATIENT
  Age: 82 Year
  Sex: Male

DRUGS (1)
  1. ISCOVER - (CLOPIDOGREL SULFATE) - TABLET - 75 MG [Suspect]
     Indication: ANGIOPATHY
     Route: 048
     Dates: start: 20030919, end: 20031119

REACTIONS (1)
  - PEMPHIGOID [None]
